FAERS Safety Report 7057908-0 (Version None)
Quarter: 2010Q4

REPORT INFORMATION
  Report Type: 
  Country: None (occurrence: None)
  Receive Date: 20101021
  Receipt Date: 20101021
  Transmission Date: 20110411
  Serious: Yes (Other)
  Sender: FDA-Public Use
  Company Number: None

PATIENT
  Age: 37 Year
  Sex: Male
  Weight: 124.7392 kg

DRUGS (4)
  1. SINGULAIR [Suspect]
     Indication: IMMUNOMODULATORY THERAPY
     Dosage: 1 TABLET DAILY PO
     Route: 048
     Dates: start: 20100120, end: 20100126
  2. SINGULAIR [Suspect]
     Indication: MULTIPLE ALLERGIES
     Dosage: 1 TABLET DAILY PO
     Route: 048
     Dates: start: 20100120, end: 20100126
  3. ZANTAC [Concomitant]
  4. ZYRTEC [Concomitant]

REACTIONS (2)
  - ANXIETY [None]
  - DEPRESSION [None]
